FAERS Safety Report 4278340-9 (Version None)
Quarter: 2004Q1

REPORT INFORMATION
  Report Type: 
  Country: None (occurrence: None)
  Receive Date: 20040123
  Receipt Date: 20000619
  Transmission Date: 20041129
  Serious: Yes (Hospitalization)
  Sender: FDA-Public Use
  Company Number: CA-ROCHE-239031

PATIENT
  Age: 35 Year
  Sex: Female
  Weight: 54.4 kg

DRUGS (3)
  1. TAMIFLU [Suspect]
     Indication: INFLUENZA
     Route: 048
     Dates: start: 20000527, end: 20000530
  2. TAMIFLU [Suspect]
     Route: 048
  3. PREDNISONE [Suspect]
     Route: 048
     Dates: start: 20000527

REACTIONS (1)
  - PANCREATITIS ACUTE [None]
